FAERS Safety Report 13990582 (Version 1)
Quarter: 2017Q3

REPORT INFORMATION
  Report Type: Spontaneous
  Country: US (occurrence: US)
  Receive Date: 20170920
  Receipt Date: 20170920
  Transmission Date: 20171128
  Serious: No
  Sender: FDA-Public Use
  Company Number: US-PFIZER INC-2017399480

PATIENT
  Age: 58 Year
  Sex: Female

DRUGS (1)
  1. XELJANZ [Suspect]
     Active Substance: TOFACITINIB CITRATE
     Indication: ARTHRITIS
     Dosage: 1 DF, 1X/DAY
     Route: 048
     Dates: start: 20170711, end: 20170721

REACTIONS (2)
  - Anaemia [Recovered/Resolved with Sequelae]
  - Immune system disorder [Unknown]

NARRATIVE: CASE EVENT DATE: 20170730
